FAERS Safety Report 5927205-2 (Version None)
Quarter: 2008Q4

REPORT INFORMATION
  Report Type: 
  Country: None (occurrence: None)
  Receive Date: 20081022
  Receipt Date: 20081015
  Transmission Date: 20090506
  Serious: Yes (Other)
  Sender: FDA-Public Use
  Company Number: US-GENENTECH-268041

PATIENT
  Sex: Male
  Weight: 101.5 kg

DRUGS (18)
  1. BEVACIZUMAB [Suspect]
     Indication: PROSTATE CANCER
     Dosage: 15 MG/KG, UNK
     Dates: start: 20080529
  2. TAXOTERE [Suspect]
     Indication: PROSTATE CANCER
     Dosage: 65 MG/M2, UNK
     Dates: start: 20080529
  3. RAD001 [Suspect]
     Indication: PROSTATE CANCER
     Dosage: 5 MG, UNK
     Route: 048
     Dates: start: 20080529
  4. LUPRON [Concomitant]
     Indication: DRUG USE FOR UNKNOWN INDICATION
  5. MULTI-VITAMIN [Concomitant]
     Indication: DRUG USE FOR UNKNOWN INDICATION
  6. ASPIRIN [Concomitant]
     Indication: DRUG USE FOR UNKNOWN INDICATION
  7. OS-CAL +D [Concomitant]
     Indication: DRUG USE FOR UNKNOWN INDICATION
  8. ZOMETA [Concomitant]
     Indication: DRUG USE FOR UNKNOWN INDICATION
  9. TYLENOL [Concomitant]
     Indication: DRUG USE FOR UNKNOWN INDICATION
  10. ADVIL [Concomitant]
     Indication: DRUG USE FOR UNKNOWN INDICATION
  11. COLACE [Concomitant]
     Indication: DRUG USE FOR UNKNOWN INDICATION
  12. ZOFRAN [Concomitant]
     Indication: DRUG USE FOR UNKNOWN INDICATION
  13. COMPAZINE [Concomitant]
     Indication: DRUG USE FOR UNKNOWN INDICATION
  14. SENOKOT [Concomitant]
     Indication: DRUG USE FOR UNKNOWN INDICATION
  15. DECADRON [Concomitant]
     Indication: DRUG USE FOR UNKNOWN INDICATION
  16. ALEVE [Concomitant]
     Indication: DRUG USE FOR UNKNOWN INDICATION
  17. IMODIUM N [Concomitant]
     Indication: DRUG USE FOR UNKNOWN INDICATION
  18. CONCOMITANT DRUG [Concomitant]
     Indication: DRUG USE FOR UNKNOWN INDICATION

REACTIONS (2)
  - NEUTROPENIA [None]
  - PYREXIA [None]
